FAERS Safety Report 10288981 (Version 1)
Quarter: 2014Q3

REPORT INFORMATION
  Report Type: Spontaneous
  Country: AU (occurrence: AU)
  Receive Date: 20140709
  Receipt Date: 20140709
  Transmission Date: 20150326
  Serious: Yes (Life-Threatening, Other)
  Sender: FDA-Public Use
  Company Number: AU-009507513-1407AUS003296

PATIENT
  Age: 53 Year
  Sex: Female
  Weight: 59 kg

DRUGS (4)
  1. PEGINTERFERON ALFA-2B [Suspect]
     Active Substance: PEGINTERFERON ALFA-2B
  2. RIBAVIRIN. [Suspect]
     Active Substance: RIBAVIRIN
     Route: 048
  3. KARVEZIDE [Concomitant]
     Active Substance: HYDROCHLOROTHIAZIDE\IRBESARTAN
     Dosage: 150/12.5
  4. TELAPREVIR [Suspect]
     Active Substance: TELAPREVIR
     Dosage: 375MG
     Route: 048
     Dates: start: 20140131, end: 20140131

REACTIONS (10)
  - Blood creatine increased [Recovered/Resolved]
  - Renal failure acute [Recovered/Resolved]
  - Rash [Recovering/Resolving]
  - Nausea [Unknown]
  - Headache [Unknown]
  - Sputum abnormal [Unknown]
  - Mood swings [Unknown]
  - Dysgeusia [Unknown]
  - Sepsis [Recovered/Resolved]
  - Fatigue [Unknown]

NARRATIVE: CASE EVENT DATE: 20140212
